FAERS Safety Report 8285295-9 (Version None)
Quarter: 2012Q2

REPORT INFORMATION
  Report Type: 
  Country: None (occurrence: None)
  Receive Date: 20120413
  Receipt Date: 20111108
  Transmission Date: 20120825
  Serious: Yes (Other)
  Sender: FDA-Public Use
  Company Number: US-ASTRAZENECA-2007UW14024

PATIENT
  Age: 85 Year
  Sex: Female
  Weight: 56.7 kg

DRUGS (9)
  1. ASPIRIN [Concomitant]
  2. NEXIUM [Suspect]
     Indication: DYSPEPSIA
     Route: 048
  3. MAGNESIUM HYDROXIDE TAB [Concomitant]
     Dosage: AS NEEDED
  4. FOSINOPRIL SODIUM [Concomitant]
  5. CRESTOR [Concomitant]
     Route: 048
  6. NEXIUM [Suspect]
     Indication: ERUCTATION
     Route: 048
  7. ATENOLOL [Concomitant]
  8. NEXIUM [Suspect]
     Indication: REGURGITATION
     Route: 048
  9. ZETIA [Concomitant]

REACTIONS (15)
  - DYSPEPSIA [None]
  - DIARRHOEA [None]
  - MALAISE [None]
  - DRUG DOSE OMISSION [None]
  - PYREXIA [None]
  - APHAGIA [None]
  - GENERAL PHYSICAL HEALTH DETERIORATION [None]
  - SLEEP DISORDER DUE TO GENERAL MEDICAL CONDITION, INSOMNIA TYPE [None]
  - ERUCTATION [None]
  - CHILLS [None]
  - VOMITING [None]
  - REGURGITATION [None]
  - DRUG INEFFECTIVE [None]
  - HIP FRACTURE [None]
  - BLOOD PRESSURE INCREASED [None]
